FAERS Safety Report 19447670 (Version 1)
Quarter: 2021Q2

REPORT INFORMATION
  Report Type: Spontaneous
  Country: US (occurrence: US)
  Receive Date: 20210622
  Receipt Date: 20210622
  Transmission Date: 20210717
  Serious: No
  Sender: FDA-Public Use
  Company Number: US-THERAPEUTICSMD-2021TMD01423

PATIENT
  Sex: Female

DRUGS (2)
  1. IMVEXXY [Suspect]
     Active Substance: ESTRADIOL
     Indication: ILL-DEFINED DISORDER
  2. IMVEXXY [Suspect]
     Active Substance: ESTRADIOL
     Indication: PELVIC PAIN
     Dosage: ^STARTER PACK^
     Route: 067
     Dates: start: 2021, end: 202103

REACTIONS (2)
  - Off label use [Recovered/Resolved]
  - Female orgasmic disorder [Not Recovered/Not Resolved]

NARRATIVE: CASE EVENT DATE: 2021
